FAERS Safety Report 17188441 (Version 1)
Quarter: 2019Q4

REPORT INFORMATION
  Report Type: Spontaneous
  Country: AU (occurrence: AU)
  Receive Date: 20191222
  Receipt Date: 20191222
  Transmission Date: 20200122
  Serious: Yes (Other)
  Sender: FDA-Public Use
  Company Number: NVSC2019AU076011

PATIENT
  Sex: Male

DRUGS (1)
  1. FRUSEMIDE SANDOZ [Suspect]
     Active Substance: FUROSEMIDE
     Indication: CARDIAC FAILURE
     Route: 065

REACTIONS (1)
  - Ejection fraction decreased [Unknown]
